FAERS Safety Report 8356750-8 (Version None)
Quarter: 2012Q2

REPORT INFORMATION
  Report Type: 
  Country: None (occurrence: None)
  Receive Date: 20120511
  Receipt Date: 20120511
  Transmission Date: 20120825
  Serious: Yes (Other)
  Sender: FDA-Public Use
  Company Number: None

PATIENT
  Age: 65 Year
  Sex: Female

DRUGS (1)
  1. XELODA [Suspect]
     Dosage: 2G BID PO
     Route: 048
     Dates: start: 20120401

REACTIONS (1)
  - SKIN ULCER [None]
